FAERS Safety Report 18964713 (Version 6)
Quarter: 2021Q3

REPORT INFORMATION
  Report Type: Report from Study
  Country: None (occurrence: US)
  Receive Date: 20210303
  Receipt Date: 20210812
  Transmission Date: 20211014
  Serious: Yes (Other)
  Sender: FDA-Public Use
  Company Number: US-ABBVIE-21K-163-3798153-00

PATIENT
  Sex: Male

DRUGS (1)
  1. HUMIRA [Suspect]
     Active Substance: ADALIMUMAB
     Indication: CROHN^S DISEASE
     Route: 058
     Dates: start: 20201029

REACTIONS (23)
  - Gait disturbance [Unknown]
  - Blood cholesterol abnormal [Unknown]
  - Vertigo [Recovering/Resolving]
  - Gastric ulcer haemorrhage [Recovered/Resolved]
  - Pulmonary mass [Unknown]
  - Limb deformity [Unknown]
  - Food intolerance [Not Recovered/Not Resolved]
  - Hypertension [Unknown]
  - Systemic lupus erythematosus [Not Recovered/Not Resolved]
  - Diabetes mellitus [Not Recovered/Not Resolved]
  - Faeces soft [Not Recovered/Not Resolved]
  - Muscle spasms [Recovering/Resolving]
  - Joint dislocation [Unknown]
  - Crohn^s disease [Unknown]
  - Muscle disorder [Not Recovered/Not Resolved]
  - Hypoacusis [Not Recovered/Not Resolved]
  - Anxiety [Unknown]
  - Haemorrhage [Recovered/Resolved]
  - Lactose intolerance [Recovering/Resolving]
  - Loss of personal independence in daily activities [Unknown]
  - Back disorder [Unknown]
  - Arthropathy [Unknown]
  - Abdominal pain upper [Not Recovered/Not Resolved]

NARRATIVE: CASE EVENT DATE: 2020
